FAERS Safety Report 5529608-7 (Version None)
Quarter: 2007Q4

REPORT INFORMATION
  Report Type: 
  Country: None (occurrence: None)
  Receive Date: 20071129
  Receipt Date: 20071117
  Transmission Date: 20080405
  Serious: Yes (Other)
  Sender: FDA-Public Use
  Company Number: US-PFIZER INC-2007085985

PATIENT
  Sex: Female
  Weight: 108 kg

DRUGS (8)
  1. CHANTIX [Suspect]
     Indication: SMOKING CESSATION THERAPY
  2. IBUPROFEN [Concomitant]
  3. ABILIFY [Concomitant]
  4. KLONOPIN [Concomitant]
  5. EFFEXOR XR [Concomitant]
  6. HYDROCHLOROTHIAZIDE [Concomitant]
  7. NEURONTIN [Concomitant]
  8. CLARITIN [Concomitant]

REACTIONS (3)
  - CONDITION AGGRAVATED [None]
  - DRUG INEFFECTIVE [None]
  - LIMB DISCOMFORT [None]
